FAERS Safety Report 4463326-1 (Version None)
Quarter: 2004Q3

REPORT INFORMATION
  Report Type: 
  Country: None (occurrence: None)
  Receive Date: 20040928
  Receipt Date: 20040915
  Transmission Date: 20050211
  Serious: Yes (Hospitalization)
  Sender: FDA-Public Use
  Company Number: 001-0981-M0000605

PATIENT
  Age: 53 Year
  Sex: Male
  Weight: 92.9 kg

DRUGS (6)
  1. ATORVASTATIN (ATORVASTATIN) [Suspect]
     Indication: CORONARY ARTERY DISEASE
     Dosage: SEE IMAGE
     Route: 048
     Dates: start: 19991204, end: 19990125
  2. ATORVASTATIN (ATORVASTATIN) [Suspect]
     Indication: CORONARY ARTERY DISEASE
     Dosage: SEE IMAGE
     Route: 048
     Dates: start: 19990126
  3. NABUMETONE [Concomitant]
  4. NITROGLYCERIN [Concomitant]
  5. OMEPRAZOLE [Concomitant]
  6. CILOSTAZOL [Concomitant]

REACTIONS (3)
  - CHOLELITHIASIS [None]
  - COUGH [None]
  - SNEEZING [None]
